FAERS Safety Report 17981455 (Version 4)
Quarter: 2022Q1

REPORT INFORMATION
  Report Type: Other
  Country: US (occurrence: None)
  Receive Date: 20200706
  Receipt Date: 20220301
  Transmission Date: 20220423
  Serious: Yes (Other)
  Sender: FDA-Public Use
  Company Number: US-ROCHE-2576434

PATIENT
  Sex: Female
  Weight: 67.192 kg

DRUGS (14)
  1. ZELBORAF [Suspect]
     Active Substance: VEMURAFENIB
     Indication: Histiocytosis
     Dosage: TAKE 2 TABLET(S) BY MOUTH TWICE A DAY
     Route: 048
     Dates: start: 201807
  2. ZELBORAF [Suspect]
     Active Substance: VEMURAFENIB
     Indication: Thrombocytopenia
  3. ZELBORAF [Suspect]
     Active Substance: VEMURAFENIB
     Indication: Erdheim-Chester disease
  4. ZELBORAF [Suspect]
     Active Substance: VEMURAFENIB
     Indication: Erdheim-Chester disease
  5. CETIRIZINE HCL [Concomitant]
     Active Substance: CETIRIZINE HYDROCHLORIDE
     Route: 048
  6. ATENOLOL [Concomitant]
     Active Substance: ATENOLOL
     Route: 048
  7. CALCIUM CARBONATE [Concomitant]
     Active Substance: CALCIUM CARBONATE
     Route: 048
  8. DULOXETINE HYDROCHLORIDE [Concomitant]
     Active Substance: DULOXETINE HYDROCHLORIDE
     Route: 048
  9. FLONASE [Concomitant]
     Active Substance: FLUTICASONE PROPIONATE
  10. SYNTHROID [Concomitant]
     Active Substance: LEVOTHYROXINE SODIUM
     Route: 048
  11. PRILOSEC [Concomitant]
     Active Substance: OMEPRAZOLE MAGNESIUM
     Route: 048
  12. POTASSIUM CHLORIDE [Concomitant]
     Active Substance: POTASSIUM CHLORIDE
     Route: 048
  13. VEMURAFENIB [Concomitant]
     Active Substance: VEMURAFENIB
     Indication: Thrombocytopenia
     Route: 048
  14. VEMURAFENIB [Concomitant]
     Active Substance: VEMURAFENIB
     Indication: Erdheim-Chester disease

REACTIONS (18)
  - Fatigue [Unknown]
  - Throat irritation [Unknown]
  - Diarrhoea [Unknown]
  - Thyroid function test abnormal [Unknown]
  - Off label use [Unknown]
  - Rhinorrhoea [Unknown]
  - Cough [Unknown]
  - Vitreous floaters [Unknown]
  - Cataract [Unknown]
  - Mass [Unknown]
  - Photosensitivity reaction [Unknown]
  - Ill-defined disorder [Unknown]
  - Fatigue [Unknown]
  - Thyroid disorder [Unknown]
  - Depression [Unknown]
  - Vitreous floaters [Unknown]
  - Cataract [Unknown]
  - Diarrhoea [Unknown]
